FAERS Safety Report 6610159-3 (Version None)
Quarter: 2010Q1

REPORT INFORMATION
  Report Type: 
  Country: None (occurrence: None)
  Receive Date: 20100302
  Receipt Date: 20100218
  Transmission Date: 20100710
  Serious: Yes (Hospitalization, Other)
  Sender: FDA-Public Use
  Company Number: FR-PFIZER INC-2010021118

PATIENT
  Age: 62 Year
  Sex: Female

DRUGS (1)
  1. PEGVISOMANT [Suspect]
     Indication: ACROMEGALY
     Dosage: UNK

REACTIONS (3)
  - ENDOMETRIAL CANCER [None]
  - PHLEBITIS [None]
  - PULMONARY EMBOLISM [None]
